FAERS Safety Report 15357892 (Version 2)
Quarter: 2019Q1

REPORT INFORMATION
  Report Type: Spontaneous
  Country: FR (occurrence: FR)
  Receive Date: 20180906
  Receipt Date: 20190321
  Transmission Date: 20190417
  Serious: Yes (Hospitalization)
  Sender: FDA-Public Use
  Company Number: PHHY2018FR088038

PATIENT
  Age: 52 Year
  Sex: Male
  Weight: 59.9 kg

DRUGS (4)
  1. RIMACTAN [Suspect]
     Active Substance: RIFAMPIN
     Dosage: 600 MG, QD
     Route: 048
     Dates: start: 20170928, end: 20180207
  2. RIMIFON [Suspect]
     Active Substance: ISONIAZID
     Dosage: 300 MG, UNK
     Route: 048
     Dates: start: 20170928, end: 20180207
  3. RIMACTAN [Suspect]
     Active Substance: RIFAMPIN
     Indication: TUBERCULOSIS
     Dosage: 300 MG, QD
     Route: 048
     Dates: start: 20170928, end: 20180207
  4. RIMIFON [Suspect]
     Active Substance: ISONIAZID
     Indication: TUBERCULOSIS
     Dosage: 600 MG, QD
     Route: 048
     Dates: start: 20170928, end: 20180207

REACTIONS (1)
  - Agranulocytosis [Recovered/Resolved]

NARRATIVE: CASE EVENT DATE: 20180207
